FAERS Safety Report 7904747-1 (Version None)
Quarter: 2011Q4

REPORT INFORMATION
  Report Type: 
  Country: None (occurrence: None)
  Receive Date: 20111109
  Receipt Date: 20111031
  Transmission Date: 20120403
  Serious: Yes (Other)
  Sender: FDA-Public Use
  Company Number: US-BAYER-2011-048373

PATIENT
  Age: 24 Year
  Sex: Female
  Weight: 87.075 kg

DRUGS (5)
  1. RANITIDINE [Concomitant]
     Dosage: 150 MG, UNK
     Dates: start: 20090318, end: 20090629
  2. MULTI-VITAMIN [Concomitant]
     Dosage: UNK
     Dates: start: 20090319, end: 20090501
  3. PROCARDIA [Concomitant]
     Indication: HYPERTENSION
     Dosage: 30 MG, UNK
     Dates: start: 20090518, end: 20090724
  4. YAZ [Suspect]
     Dosage: UNK
     Dates: start: 20090101
  5. MAXARON FORTE [Concomitant]
     Dosage: UNK
     Dates: start: 20090304, end: 20090501

REACTIONS (3)
  - PAIN [None]
  - GALLBLADDER DISORDER [None]
  - CHOLELITHIASIS [None]
